FAERS Safety Report 15116728 (Version 1)
Quarter: 2018Q3

REPORT INFORMATION
  Report Type: Spontaneous
  Country: GB (occurrence: GB)
  Receive Date: 20180706
  Receipt Date: 20180706
  Transmission Date: 20181010
  Serious: Yes (Hospitalization)
  Sender: FDA-Public Use
  Company Number: GB-BRACCO-2018GB03483

PATIENT
  Age: 65 Year
  Sex: Male

DRUGS (1)
  1. NIOPAM 300 [Suspect]
     Active Substance: IOPAMIDOL
     Indication: COMPUTERISED TOMOGRAM
     Dosage: 85 ML, SINGLE
     Route: 042
     Dates: start: 20180628, end: 20180628

REACTIONS (7)
  - Blood pressure decreased [Unknown]
  - Hypocalcaemia [Unknown]
  - Depressed level of consciousness [Unknown]
  - Dizziness [Unknown]
  - Malaise [Unknown]
  - Metabolic acidosis [Unknown]
  - Blood phosphorus decreased [Unknown]

NARRATIVE: CASE EVENT DATE: 20180628
